FAERS Safety Report 8887224 (Version 3)
Quarter: 2013Q2

REPORT INFORMATION
  Report Type: Spontaneous
  Country: US (occurrence: US)
  Receive Date: 20121105
  Receipt Date: 20130531
  Transmission Date: 20140414
  Serious: Yes (Disabling, Other)
  Sender: FDA-Public Use
  Company Number: US-PFIZER INC-2012268499

PATIENT
  Age: 60 Year
  Sex: Female
  Weight: 56.69 kg

DRUGS (3)
  1. LYRICA [Suspect]
     Indication: NERVE ROOT COMPRESSION
     Dosage: 75 MG, 2X/DAY
     Dates: start: 201108
  2. SKELAXIN [Concomitant]
     Indication: MUSCLE SPASMS
     Dosage: UNK, AS NEEDED
  3. ALEVE [Concomitant]
     Dosage: UNK

REACTIONS (8)
  - Cervical spinal stenosis [Unknown]
  - Intervertebral disc protrusion [Unknown]
  - Hand deformity [Recovering/Resolving]
  - Tension [Unknown]
  - Fear of crowded places [Unknown]
  - Musculoskeletal discomfort [Unknown]
  - Stress [Unknown]
  - Pain [Unknown]
